FAERS Safety Report 6420306-4 (Version None)
Quarter: 2009Q4

REPORT INFORMATION
  Report Type: 
  Country: None (occurrence: None)
  Receive Date: 20091029
  Receipt Date: 20091023
  Transmission Date: 20100525
  Serious: Yes (Hospitalization)
  Sender: FDA-Public Use
  Company Number: US-ABBOTT-09P-163-0604637-00

PATIENT
  Sex: Male
  Weight: 158.9 kg

DRUGS (5)
  1. ADVICOR [Suspect]
     Indication: BLOOD CHOLESTEROL INCREASED
     Dosage: 1000/20
     Route: 048
  2. ADVICOR [Suspect]
     Indication: HYPERLIPIDAEMIA
     Route: 048
  3. MEFORMIN [Concomitant]
     Indication: DIABETES MELLITUS
     Dosage: UNKNOWN STRENGTH
     Route: 048
  4. UNKNOWN PAIN MEDICATION [Concomitant]
     Indication: PROCEDURAL PAIN
  5. CARVEDILOL [Concomitant]
     Indication: HYPERTENSION
     Route: 048

REACTIONS (2)
  - BLOOD GLUCOSE INCREASED [None]
  - GASTRIC BYPASS [None]
